FAERS Safety Report 5822920-3 (Version None)
Quarter: 2008Q3

REPORT INFORMATION
  Report Type: 
  Country: None (occurrence: None)
  Receive Date: 20080724
  Receipt Date: 20080724
  Transmission Date: 20090109
  Serious: Yes (Hospitalization, Other)
  Sender: FDA-Public Use
  Company Number: None

PATIENT
  Age: 51 Year
  Sex: Female
  Weight: 89.8122 kg

DRUGS (1)
  1. PHENTERMINE [Suspect]
     Indication: WEIGHT CONTROL
     Dosage: 37.5 MG
     Dates: start: 20060706, end: 20080714

REACTIONS (4)
  - ANGIOEDEMA [None]
  - FACE OEDEMA [None]
  - RESPIRATORY DISORDER [None]
  - TONGUE OEDEMA [None]
